FAERS Safety Report 13696767 (Version 4)
Quarter: 2018Q3

REPORT INFORMATION
  Report Type: Spontaneous
  Country: US (occurrence: US)
  Receive Date: 20170628
  Receipt Date: 20180709
  Transmission Date: 20181010
  Serious: Yes (Death, Life-Threatening, Hospitalization, Other)
  Sender: FDA-Public Use
  Company Number: US-GLENMARK PHARMACEUTICALS-2017GMK028008

PATIENT
  Age: 39 Year
  Sex: Male

DRUGS (6)
  1. CYCLOBENZAPRINE. [Concomitant]
     Active Substance: CYCLOBENZAPRINE
     Indication: PRODUCT USED FOR UNKNOWN INDICATION
     Dosage: UNK
     Route: 065
  2. SULFAMETHOXAZOLE AND TRIMETHOPRIM [Concomitant]
     Active Substance: SULFAMETHOXAZOLE\TRIMETHOPRIM
     Indication: PRODUCT USED FOR UNKNOWN INDICATION
     Dosage: UNK
     Route: 065
  3. LIDOCAINE. [Suspect]
     Active Substance: LIDOCAINE
     Indication: PAIN
     Dosage: 650 ML OF 4% (26 G) INTRANASALLY
     Route: 045
  4. LIDOCAINE. [Suspect]
     Active Substance: LIDOCAINE
     Dosage: 120 ML, TOPICAL SOLUTION INTRANASALLY (26 G LIDOCAINE) ; IN TOTAL
     Route: 045
  5. GABAPENTIN. [Concomitant]
     Active Substance: GABAPENTIN
     Indication: PRODUCT USED FOR UNKNOWN INDICATION
     Dosage: UNK
     Route: 065
  6. IBUPROFEN. [Concomitant]
     Active Substance: IBUPROFEN
     Indication: PRODUCT USED FOR UNKNOWN INDICATION
     Dosage: UNK
     Route: 065

REACTIONS (12)
  - Cerebral artery thrombosis [Unknown]
  - Acute respiratory failure [Fatal]
  - Cerebrovascular accident [Fatal]
  - Hemiparesis [Unknown]
  - Carotid artery thrombosis [Unknown]
  - Aortic thrombosis [Unknown]
  - Toxicity to various agents [Fatal]
  - Aphasia [Unknown]
  - Depressed level of consciousness [Unknown]
  - Brain stem syndrome [Fatal]
  - Myocardial stunning [Unknown]
  - Embolism [Fatal]
